FAERS Safety Report 10017545 (Version 1)
Quarter: 2014Q1

REPORT INFORMATION
  Report Type: Spontaneous
  Country: US (occurrence: None)
  Receive Date: 20140312
  Receipt Date: 20140312
  Transmission Date: 20141002
  Serious: Yes (Hospitalization)
  Sender: FDA-Public Use
  Company Number: UTC-045305

PATIENT
  Age: 35 Year
  Sex: Female

DRUGS (5)
  1. REMODULIN [Suspect]
     Indication: PULMONARY ARTERIAL HYPERTENSION
     Dosage: 103.68 UG/KG (0.072 UG/KG), 1 IN 1 MIN), SUBCUTANEOUS
     Route: 058
     Dates: start: 20100909
  2. ADCIRCA (TADALAFIL) (UNKNOWN) [Concomitant]
  3. TRACLEER (BOSENTAN) (UNKNOWN) [Concomitant]
  4. DIURETICS (DIURETICS) (UNKNOWN) [Concomitant]
  5. COUMADIN (WARFARIN SODIUM) [Concomitant]

REACTIONS (2)
  - Fall [None]
  - Loss of consciousness [None]
